FAERS Safety Report 16660180 (Version 2)
Quarter: 2019Q4

REPORT INFORMATION
  Report Type: Spontaneous
  Country: DE (occurrence: DE)
  Receive Date: 20190802
  Receipt Date: 20191217
  Transmission Date: 20200122
  Serious: Yes (Hospitalization, Disabling, Other)
  Sender: FDA-Public Use
  Company Number: DE-BRISTOL-MYERS SQUIBB COMPANY-BMS-2019-073376

PATIENT
  Age: 59 Year
  Sex: Female
  Weight: 92 kg

DRUGS (3)
  1. FOLSAEURE [Concomitant]
     Active Substance: FOLIC ACID
     Indication: RHEUMATOID ARTHRITIS
     Dosage: 5 MILLIGRAM
     Route: 048
  2. ORENCIA [Suspect]
     Active Substance: ABATACEPT
     Indication: RHEUMATOID ARTHRITIS
     Dosage: 750 MILLIGRAM, Q4WK
     Route: 041
  3. METHOTREXAT [METHOTREXATE] [Suspect]
     Active Substance: METHOTREXATE
     Indication: RHEUMATOID ARTHRITIS
     Dosage: 5 MILLIGRAM
     Route: 048

REACTIONS (2)
  - Squamous cell carcinoma of the oral cavity [Not Recovered/Not Resolved]
  - Bronchioloalveolar carcinoma [Not Recovered/Not Resolved]

NARRATIVE: CASE EVENT DATE: 201906
